FAERS Safety Report 6252363-2 (Version None)
Quarter: 2009Q2

REPORT INFORMATION
  Report Type: 
  Country: None (occurrence: None)
  Receive Date: 20090622
  Receipt Date: 20090612
  Transmission Date: 20091009
  Serious: Yes (Hospitalization)
  Sender: FDA-Public Use
  Company Number: ADR4922009 (BFARM REF NO:. DE-BFARM

PATIENT
  Age: 72 Year
  Sex: Female

DRUGS (10)
  1. AMLODIPINE [Suspect]
     Indication: HYPERTENSION
     Dosage: 5 MG, ORAL
     Route: 048
     Dates: start: 20080501
  2. ALENDRONSAEURE (70 MG) [Concomitant]
  3. CALCIMAGON-D3 (1 DF) [Concomitant]
  4. CO-DIOVAN (12. 5 MG HYDRO ORAL CHLOROTHIAZIDE/320 MG  VALSARTAN) [Concomitant]
  5. GODAMED (100 MG) [Concomitant]
  6. MICTONORM (30 MG) [Concomitant]
  7. PANTOZOL (40 MG) [Concomitant]
  8. PRESOMEN (0.6 MG) [Concomitant]
  9. VIANI (50 PG/250 UG) [Concomitant]
  10. FENTANYL (50 UG) [Concomitant]

REACTIONS (1)
  - FAECALOMA [None]
